FAERS Safety Report 12515659 (Version 4)
Quarter: 2016Q3

REPORT INFORMATION
  Report Type: Spontaneous
  Country: US (occurrence: US)
  Receive Date: 20160630
  Receipt Date: 20160906
  Transmission Date: 20161109
  Serious: Yes (Hospitalization)
  Sender: FDA-Public Use
  Company Number: US-ASTELLAS-2016US024549

PATIENT
  Age: 93 Year
  Sex: Male

DRUGS (1)
  1. XTANDI [Suspect]
     Active Substance: ENZALUTAMIDE
     Indication: PROSTATE CANCER
     Route: 048
     Dates: start: 201606

REACTIONS (10)
  - Vertigo [Unknown]
  - Peripheral artery thrombosis [Unknown]
  - Decreased appetite [Unknown]
  - Dysphagia [Unknown]
  - Dysgeusia [Unknown]
  - Constipation [Unknown]
  - Fatigue [Unknown]
  - Slow speech [Unknown]
  - Confusional state [Unknown]
  - Asthenia [Unknown]

NARRATIVE: CASE EVENT DATE: 201606
